FAERS Safety Report 8091112-2 (Version None)
Quarter: 2012Q1

REPORT INFORMATION
  Report Type: 
  Country: None (occurrence: None)
  Receive Date: 20120125
  Receipt Date: 20120112
  Transmission Date: 20120608
  Serious: Yes (Hospitalization)
  Sender: FDA-Public Use
  Company Number: 2011HGS-002727

PATIENT
  Age: 30 Year
  Sex: Female
  Weight: 90.7194 kg

DRUGS (9)
  1. PLAQUENIL (HYDROXYCHLOROQUINE SULFATE) (HYDROXYCHLOROQUINE SULFATE) [Concomitant]
  2. CELEXA [Concomitant]
  3. IRON (IRON) (IRON) [Concomitant]
  4. KEFLEX (CEFALEXIN) (CEFALEXIN) [Concomitant]
  5. TYLENOL (PARACETAMOL) (PARACETAMOL) [Concomitant]
  6. ACYCLOVIR (ACICLOVIR) (ACICLOVIR) [Concomitant]
  7. PREDNISONE [Concomitant]
  8. MYCOPHENOLATE (MYCOPHENOLATE MOFETIL) (MYCOPHENOLATE MOFETIL) [Concomitant]
  9. BENLYSTA [Suspect]
     Indication: SYSTEMIC LUPUS ERYTHEMATOSUS
     Dosage: 920 MG, 1 IN 28 D, INTRAVENOUS
     Route: 042
     Dates: start: 20111013

REACTIONS (6)
  - DRUG INEFFECTIVE [None]
  - CONDITION AGGRAVATED [None]
  - MYOSITIS [None]
  - FASCIITIS [None]
  - HISTOPLASMOSIS [None]
  - PYREXIA [None]
